FAERS Safety Report 12166393 (Version 2)
Quarter: 2016Q2

REPORT INFORMATION
  Report Type: Report from Study
  Country: US (occurrence: US)
  Receive Date: 20160309
  Receipt Date: 20160408
  Transmission Date: 20160815
  Serious: Yes (Other)
  Sender: FDA-Public Use
  Company Number: US-AMGEN-USASL2016028645

PATIENT
  Age: 76 Year
  Sex: Female
  Weight: 91.34 kg

DRUGS (25)
  1. HYDROXYCHLOROQUINE SULFATE. [Concomitant]
     Active Substance: HYDROXYCHLOROQUINE SULFATE
     Dosage: 200 MG, BID
  2. PREDNISONE. [Concomitant]
     Active Substance: PREDNISONE
     Dosage: UNK
  3. FLEXERIL [Concomitant]
     Active Substance: CYCLOBENZAPRINE HYDROCHLORIDE
     Dosage: UNK
  4. FOLIC ACID. [Concomitant]
     Active Substance: FOLIC ACID
     Dosage: 1 MG TABLET, 2 TABS ONCE A DAY
  5. MAGNESIUM [Concomitant]
     Active Substance: MAGNESIUM
     Dosage: UNK
  6. ENBREL [Suspect]
     Active Substance: ETANERCEPT
     Indication: RHEUMATOID ARTHRITIS
     Dosage: 50 MG, QWK
     Route: 058
     Dates: start: 201408
  7. LEVOTHYROXINE. [Concomitant]
     Active Substance: LEVOTHYROXINE
     Dosage: 100 MU, QD
  8. LISINOPRIL HCTZ [Concomitant]
     Active Substance: HYDROCHLOROTHIAZIDE\LISINOPRIL
     Dosage: 25-20 MG, 1 TAB ONCE A DAY
  9. CALCIUM [Concomitant]
     Active Substance: CALCIUM
     Dosage: UNK
  10. NORTRIPTYLINE [Concomitant]
     Active Substance: NORTRIPTYLINE
     Dosage: 10 MG 1 TAB QHS, PRN
  11. SIMVASTATIN. [Concomitant]
     Active Substance: SIMVASTATIN
     Dosage: 5 MG, QHS
  12. REPLESTA [Concomitant]
     Indication: VITAMIN D DEFICIENCY
     Dosage: 50000 IU, ONCE A MONTH
  13. ZINC [Concomitant]
     Active Substance: ZINC\ZINC CHLORIDE
     Dosage: 1000 MG, UNK
  14. FAMOTIDINE. [Concomitant]
     Active Substance: FAMOTIDINE
     Dosage: 20 MG, BID
  15. HUMIRA [Concomitant]
     Active Substance: ADALIMUMAB
     Dosage: UNK
     Dates: start: 201211, end: 201408
  16. ZINC [Concomitant]
     Active Substance: ZINC\ZINC CHLORIDE
     Dosage: 400 UNK, UNK
  17. RECLAST [Concomitant]
     Active Substance: ZOLEDRONIC ACID
     Dosage: 5MG/100ML SOLUTION 5 MG EVERY 18 MONTHS
     Dates: start: 201310
  18. HYDROXYCHLOROQUINE [Concomitant]
     Active Substance: HYDROXYCHLOROQUINE
     Dosage: UNK
  19. VITAMIN D                          /00107901/ [Concomitant]
     Active Substance: ERGOCALCIFEROL
     Dosage: 1000 IU, QD
  20. TYLENOL [Concomitant]
     Active Substance: ACETAMINOPHEN
     Dosage: UNK
  21. PANTOPRAZOLE [Concomitant]
     Active Substance: PANTOPRAZOLE SODIUM
     Dosage: 40 MG, 1 TAB ONCE DAY
  22. VITAMIN B COMPLEX [Concomitant]
     Active Substance: CYANOCOBALAMIN\DEXPANTHENOL\NIACINAMIDE\PYRIDOXINE HYDROCHLORIDE\RIBOFLAVIN 5^-PHOSPHATE SODIUM\THIAMINE HYDROCHLORIDE\VITAMIN B COMPLEX
     Dosage: 500 MG, 2 TABS DAILY
  23. METHOTREXATE [Concomitant]
     Active Substance: METHOTREXATE
     Dosage: 2.5 MG, 8 TABS ONCE A WEEK
  24. ZINC [Concomitant]
     Active Substance: ZINC\ZINC CHLORIDE
     Dosage: 25 MG, QD
  25. ASPIR 81 [Concomitant]
     Dosage: 81 MG, QHS

REACTIONS (32)
  - Sinusitis [Recovered/Resolved]
  - Tendon discomfort [Unknown]
  - Headache [Unknown]
  - Gastrooesophageal reflux disease [Unknown]
  - Fatigue [Unknown]
  - Contusion [Unknown]
  - Muscle rupture [Unknown]
  - Carpal tunnel decompression [Unknown]
  - Bursitis [Unknown]
  - Hypoaesthesia [Unknown]
  - Nasopharyngitis [Unknown]
  - Arthropathy [Unknown]
  - Joint crepitation [Unknown]
  - Arthralgia [Unknown]
  - Musculoskeletal stiffness [Unknown]
  - Osteoarthritis [Unknown]
  - Vitamin D deficiency [Unknown]
  - Temperature intolerance [Unknown]
  - Pain [Unknown]
  - Constipation [Unknown]
  - Muscular weakness [Unknown]
  - Burning sensation [Unknown]
  - Dyspepsia [Unknown]
  - Paranasal sinus hypersecretion [Unknown]
  - Drug effect variable [Unknown]
  - Cough [Recovered/Resolved]
  - Oedema peripheral [Unknown]
  - Hypoalbuminaemia [Unknown]
  - Paraesthesia [Unknown]
  - Dry eye [Unknown]
  - Insomnia [Unknown]
  - Foot deformity [Unknown]

NARRATIVE: CASE EVENT DATE: 201512
